FAERS Safety Report 5847374-2 (Version None)
Quarter: 2008Q3

REPORT INFORMATION
  Report Type: 
  Country: None (occurrence: None)
  Receive Date: 20080813
  Receipt Date: 20080707
  Transmission Date: 20090109
  Serious: Yes (Hospitalization)
  Sender: FDA-Public Use
  Company Number: GXKR2008SK07361

PATIENT
  Age: 17 Year
  Sex: Male

DRUGS (4)
  1. CEFUROXIME [Suspect]
     Indication: LARYNGITIS
     Dosage: 500 MG, BID, ORAL
     Route: 048
     Dates: start: 20080421, end: 20080422
  2. CEFUROXIME [Suspect]
     Indication: TRACHEITIS
     Dosage: 500 MG, BID, ORAL
     Route: 048
     Dates: start: 20080421, end: 20080422
  3. CALCIUM CHLORIDE [Concomitant]
  4. ZODAC (CETIRIZINE HYDROCHLORIDE) [Concomitant]

REACTIONS (5)
  - CONFUSIONAL STATE [None]
  - DISORIENTATION [None]
  - DYSPHAGIA [None]
  - MALAISE [None]
  - VERTIGO [None]
